FAERS Safety Report 6604752-1 (Version None)
Quarter: 2010Q1

REPORT INFORMATION
  Report Type: 
  Country: None (occurrence: None)
  Receive Date: 20100226
  Receipt Date: 20091205
  Transmission Date: 20100710
  Serious: No
  Sender: FDA-Public Use
  Company Number: US-BRISTOL-MYERS SQUIBB COMPANY-14897961

PATIENT
  Sex: Female

DRUGS (4)
  1. ONGLYZA [Suspect]
  2. GLUCOVANCE [Suspect]
     Dosage: 1 DF = 1 PILL(5/500)
  3. GLIMEPIRIDE [Suspect]
  4. GLUCOTROL [Suspect]

REACTIONS (2)
  - ADVERSE EVENT [None]
  - BLOOD GLUCOSE FLUCTUATION [None]
